FAERS Safety Report 9753016 (Version 1)
Quarter: 2013Q4

REPORT INFORMATION
  Report Type: Spontaneous
  Country: US (occurrence: US)
  Receive Date: 20131213
  Receipt Date: 20131213
  Transmission Date: 20140711
  Serious: No
  Sender: FDA-Public Use
  Company Number: US-009507513-1312USA003676

PATIENT
  Sex: 0

DRUGS (2)
  1. DULERA [Suspect]
     Dosage: UNK
  2. DULERA [Suspect]
     Dosage: ONE PUFF PER DAY

REACTIONS (3)
  - Feeling jittery [Unknown]
  - Nervousness [Unknown]
  - Underdose [Unknown]
